FAERS Safety Report 5571796-0 (Version None)
Quarter: 2007Q4

REPORT INFORMATION
  Report Type: 
  Country: None (occurrence: None)
  Receive Date: 20071221
  Receipt Date: 20071221
  Transmission Date: 20080405
  Serious: Yes (Hospitalization)
  Sender: FDA-Public Use
  Company Number: A0700265A

PATIENT
  Age: 75 Year
  Sex: Female

DRUGS (6)
  1. ALLI [Suspect]
     Dates: start: 20071101
  2. TOPROL-XL [Concomitant]
  3. CHOLESTEROL REDUCING AGENT [Concomitant]
  4. BONIVA [Concomitant]
  5. SINGULAIR [Concomitant]
  6. ADVAIR DISKUS 100/50 [Concomitant]

REACTIONS (4)
  - MUSCULOSKELETAL DISCOMFORT [None]
  - STEATORRHOEA [None]
  - SURGERY [None]
  - WEIGHT INCREASED [None]
